FAERS Safety Report 4466662-8 (Version None)
Quarter: 2004Q4

REPORT INFORMATION
  Report Type: 
  Country: None (occurrence: None)
  Receive Date: 20041001
  Receipt Date: 20041001
  Transmission Date: 20050328
  Serious: Yes (Life-Threatening)
  Sender: FDA-Public Use
  Company Number: None

PATIENT
  Weight: 111.1313 kg

DRUGS (2)
  1. VIOXX [Suspect]
     Indication: PAIN
     Dosage: 25 MG   ONCE DAILY   ORAL
     Route: 048
     Dates: start: 20030312, end: 20040929
  2. VIOXX [Suspect]
     Indication: RHEUMATOID ARTHRITIS
     Dosage: 25 MG   ONCE DAILY   ORAL
     Route: 048
     Dates: start: 20030312, end: 20040929

REACTIONS (1)
  - ELECTROCARDIOGRAM ABNORMAL [None]
